FAERS Safety Report 11682513 (Version 1)
Quarter: 2015Q4

REPORT INFORMATION
  Report Type: Spontaneous
  Country: US (occurrence: None)
  Receive Date: 20151028
  Receipt Date: 20151028
  Transmission Date: 20160304
  Serious: No
  Sender: FDA-Public Use
  Company Number: None

PATIENT
  Age: 61 Year
  Sex: Male

DRUGS (12)
  1. OMEPRAZOLE. [Concomitant]
     Active Substance: OMEPRAZOLE
  2. ALBUTEROL HFA [Concomitant]
     Active Substance: ALBUTEROL SULFATE
  3. LETAIRIS [Suspect]
     Active Substance: AMBRISENTAN
     Indication: PORTAL HYPERTENSION
     Route: 048
     Dates: start: 20151001, end: 20151012
  4. GLIPIZIDE. [Concomitant]
     Active Substance: GLIPIZIDE
  5. KCI [Concomitant]
  6. NPH INSULIN [Concomitant]
     Active Substance: INSULIN BEEF
  7. NADOLOL. [Concomitant]
     Active Substance: NADOLOL
  8. SILDENAFIL. [Concomitant]
     Active Substance: SILDENAFIL
  9. TERAZOSIN [Concomitant]
     Active Substance: TERAZOSIN\TERAZOSIN HYDROCHLORIDE
  10. TREPROSTINIL [Concomitant]
     Active Substance: TREPROSTINIL
  11. ZOLPIDEM [Concomitant]
     Active Substance: ZOLPIDEM\ZOLPIDEM TARTRATE
  12. FUROSEMIDE. [Concomitant]
     Active Substance: FUROSEMIDE

REACTIONS (7)
  - Malaise [None]
  - Swelling face [None]
  - Headache [None]
  - Nasal congestion [None]
  - Insomnia [None]
  - Rhinorrhoea [None]
  - Peripheral swelling [None]

NARRATIVE: CASE EVENT DATE: 20151016
